FAERS Safety Report 16763624 (Version 7)
Quarter: 2023Q2

REPORT INFORMATION
  Report Type: Spontaneous
  Country: US (occurrence: US)
  Receive Date: 20190902
  Receipt Date: 20230509
  Transmission Date: 20230722
  Serious: Yes (Other)
  Sender: FDA-Public Use
  Company Number: US-GILEAD-2019-0425697

PATIENT
  Age: 60 Year
  Sex: Male

DRUGS (10)
  1. STRIBILD [Suspect]
     Active Substance: COBICISTAT\ELVITEGRAVIR\EMTRICITABINE\TENOFOVIR DISOPROXIL FUMARATE
     Indication: HIV infection
     Dosage: UNK
     Route: 048
     Dates: start: 20170104, end: 20180102
  2. TAMSULOSIN [Concomitant]
     Active Substance: TAMSULOSIN
  3. VITAMIN D NOS [Concomitant]
     Active Substance: VITAMIN D NOS
  4. HYDROCODONE BITARTRATE AND ACETAMINOPHEN [Concomitant]
     Active Substance: ACETAMINOPHEN\HYDROCODONE BITARTRATE
  5. ATORVASTATIN [Concomitant]
     Active Substance: ATORVASTATIN
  6. ALLOPURINOL [Concomitant]
     Active Substance: ALLOPURINOL
  7. RANITIDINE [Concomitant]
     Active Substance: RANITIDINE
  8. LISINOPRIL AND HYDROCHLOROTHIAZIDE [Concomitant]
     Active Substance: HYDROCHLOROTHIAZIDE\LISINOPRIL
  9. DILTIAZEM [Concomitant]
     Active Substance: DILTIAZEM
  10. METHOCARBAMOL [Concomitant]
     Active Substance: METHOCARBAMOL

REACTIONS (8)
  - Osteonecrosis [Unknown]
  - Tooth loss [Unknown]
  - Bone loss [Not Recovered/Not Resolved]
  - Emotional distress [Unknown]
  - Anhedonia [Unknown]
  - Economic problem [Unknown]
  - Anxiety [Unknown]
  - Pain [Unknown]

NARRATIVE: CASE EVENT DATE: 20190412
